FAERS Safety Report 6449118-2 (Version None)
Quarter: 2009Q4

REPORT INFORMATION
  Report Type: 
  Country: None (occurrence: None)
  Receive Date: 20091120
  Receipt Date: 20091110
  Transmission Date: 20100525
  Serious: Yes (Hospitalization)
  Sender: FDA-Public Use
  Company Number: US-ELI_LILLY_AND_COMPANY-US200911000147

PATIENT
  Age: 79 Year
  Sex: Male
  Weight: 63 kg

DRUGS (18)
  1. GEMCITABINE HCL [Suspect]
     Indication: BLADDER CANCER
     Dosage: 1770 MG, OTHER
     Route: 042
     Dates: start: 20090515, end: 20091008
  2. CISPLATIN [Suspect]
     Indication: BLADDER CANCER
     Route: 042
     Dates: start: 20090515, end: 20091001
  3. COMPAZINE [Concomitant]
     Dosage: 10 MG, UNK
     Dates: start: 20090428
  4. DEXAMETHASONE [Concomitant]
     Dosage: 4 MG, UNK
     Dates: start: 20090428
  5. ACTONEL [Concomitant]
  6. LORAZEPAM [Concomitant]
     Dosage: 1 MG, UNK
     Dates: start: 20090428
  7. EMEND [Concomitant]
  8. FENOFIBRATE [Concomitant]
  9. LUNESTA [Concomitant]
     Dosage: 1 MG, EACH EVENING
  10. MARINOL [Concomitant]
     Dosage: 5 MG, 2/D
  11. NIASPAN [Concomitant]
  12. ZOFRAN [Concomitant]
     Indication: VOMITING
     Dosage: 8 MG, AS NEEDED
  13. PERCOCET [Concomitant]
     Indication: PAIN
     Dosage: UNK, AS NEEDED
  14. RANITIDINE [Concomitant]
  15. SENNA [Concomitant]
     Indication: CONSTIPATION
     Dosage: UNK, AS NEEDED
  16. TRAZODONE HCL [Concomitant]
  17. CALCIUM [Concomitant]
  18. MULTI-VITAMIN [Concomitant]

REACTIONS (1)
  - SEPSIS [None]
